FAERS Safety Report 7559988-2 (Version None)
Quarter: 2011Q2

REPORT INFORMATION
  Report Type: 
  Country: None (occurrence: None)
  Receive Date: 20110621
  Receipt Date: 20110608
  Transmission Date: 20111010
  Serious: Yes (Other)
  Sender: FDA-Public Use
  Company Number: PHHY2011US51433

PATIENT
  Sex: Female

DRUGS (9)
  1. SANDOSTATIN LAR [Suspect]
     Dosage: 30 MG, EVERY 21 DAYS
     Route: 030
     Dates: start: 20100113
  2. HYDROCODONE [Concomitant]
     Dates: start: 20110418
  3. ZOLPIDEM [Concomitant]
     Dates: start: 20110523
  4. PROMETHAZINE [Concomitant]
     Dates: start: 20110519
  5. DOXYCYCLINE HYCLATE [Concomitant]
     Dates: start: 20110302
  6. CARTIA XT [Concomitant]
  7. OMEPRAZOLE [Concomitant]
     Dosage: 20 MG, UNK
     Dates: start: 20100925
  8. OXYCODONE HCL AND ACETAMINOPHEN [Concomitant]
     Dates: start: 20110418
  9. MICARDIS [Concomitant]

REACTIONS (1)
  - NEEDLE ISSUE [None]
